FAERS Safety Report 12981305 (Version 3)
Quarter: 2017Q1

REPORT INFORMATION
  Report Type: Spontaneous
  Country: US (occurrence: US)
  Receive Date: 20161129
  Receipt Date: 20170105
  Transmission Date: 20170428
  Serious: Yes (Death, Life-Threatening, Hospitalization)
  Sender: FDA-Public Use
  Company Number: US-ROCHE-1858236

PATIENT
  Age: 58 Year
  Sex: Male

DRUGS (14)
  1. LEUKINE [Concomitant]
     Active Substance: SARGRAMOSTIM
  2. EPOETIN ALFA [Concomitant]
     Active Substance: ERYTHROPOIETIN
     Dosage: 40000 UNITS WE
     Route: 042
     Dates: start: 20160928, end: 20160929
  3. EPOETIN ALFA [Concomitant]
     Active Substance: ERYTHROPOIETIN
     Dosage: 40000 UNITS ONCE
     Route: 058
     Dates: start: 20161005
  4. EPOETIN ALFA [Concomitant]
     Active Substance: ERYTHROPOIETIN
     Dosage: 40000 UNITS 1 EA WE@1200
     Route: 042
     Dates: start: 20161005, end: 20161005
  5. AVASTIN [Suspect]
     Active Substance: BEVACIZUMAB
     Indication: MALIGNANT GLIOMA
     Route: 042
     Dates: start: 20160809, end: 20160830
  6. OPDIVO [Suspect]
     Active Substance: NIVOLUMAB
     Indication: MALIGNANT GLIOMA
     Dosage: 3MG/KG, X1
     Route: 065
     Dates: start: 20160928, end: 20161013
  7. GRANIX [Concomitant]
     Active Substance: TBO-FILGRASTIM
     Route: 065
  8. EPOETIN ALFA [Concomitant]
     Active Substance: ERYTHROPOIETIN
     Dosage: 40000 UNITS 1 EA FR@1200
     Route: 042
     Dates: start: 20161014, end: 20161024
  9. VINCRISTINE [Concomitant]
     Active Substance: VINCRISTINE
     Indication: MALIGNANT GLIOMA
     Route: 042
     Dates: start: 20160809, end: 20160830
  10. AVASTIN [Suspect]
     Active Substance: BEVACIZUMAB
     Route: 042
     Dates: start: 201609, end: 201610
  11. CCNU [Concomitant]
     Active Substance: LOMUSTINE
     Indication: MALIGNANT GLIOMA
     Dosage: X1
     Route: 048
     Dates: start: 20160802
  12. EPOETIN ALFA [Concomitant]
     Active Substance: ERYTHROPOIETIN
     Dosage: 40000 UNITS WE
     Route: 042
     Dates: start: 20160907, end: 20160907
  13. MATULANE [Suspect]
     Active Substance: PROCARBAZINE HYDROCHLORIDE
     Indication: MALIGNANT GLIOMA
     Route: 048
     Dates: start: 20160809, end: 20160823
  14. EPOETIN ALFA [Concomitant]
     Active Substance: ERYTHROPOIETIN
     Dosage: 40000 UNITS WE
     Route: 058
     Dates: start: 20160907, end: 20160924

REACTIONS (9)
  - Anorectal disorder [Unknown]
  - Rectal haemorrhage [Unknown]
  - Anaemia [Fatal]
  - Rectal fissure [Unknown]
  - Immune thrombocytopenic purpura [Fatal]
  - Deep vein thrombosis [Unknown]
  - Acute hepatic failure [Fatal]
  - Malignant glioma [Fatal]
  - Neutropenia [Unknown]

NARRATIVE: CASE EVENT DATE: 20160902
